FAERS Safety Report 13458356 (Version 1)
Quarter: 2017Q2

REPORT INFORMATION
  Report Type: Spontaneous
  Country: CN (occurrence: CN)
  Receive Date: 20170419
  Receipt Date: 20170419
  Transmission Date: 20170830
  Serious: Yes (Hospitalization)
  Sender: FDA-Public Use
  Company Number: CN-PFIZER INC-2017169532

PATIENT
  Age: 67 Year
  Sex: Male

DRUGS (1)
  1. GLUCOTROL XL [Suspect]
     Active Substance: GLIPIZIDE
     Indication: HYPERGLYCAEMIA
     Dosage: 5 MG, EVERY DAY (QD)
     Route: 048
     Dates: start: 20070522, end: 20161227

REACTIONS (2)
  - Dizziness [Recovered/Resolved]
  - Cerebrovascular disorder [Unknown]

NARRATIVE: CASE EVENT DATE: 20161226
